FAERS Safety Report 24565101 (Version 1)
Quarter: 2024Q4

REPORT INFORMATION
  Report Type: Spontaneous
  Country: US (occurrence: None)
  Receive Date: 20241029
  Receipt Date: 20241029
  Transmission Date: 20250114
  Serious: Yes (Life-Threatening)
  Sender: Public
  Company Number: None

PATIENT
  Age: 64 Year
  Sex: Female
  Weight: 81 kg

DRUGS (10)
  1. INSULIN LISPRO PROTAMINE AND INSULIN LISPRO INJECTABLE SUSPENSION MIX7 [Suspect]
     Active Substance: INSULIN LISPRO
     Indication: Diabetes mellitus
     Dosage: FREQUENCY : 3 TIMES A DAY;?OTHER ROUTE : INJECTED IN STOMACH AREA;?
     Route: 050
     Dates: start: 20000620
  2. OXYGEN [Concomitant]
     Active Substance: OXYGEN
  3. GABAPENTIN [Concomitant]
     Active Substance: GABAPENTIN
  4. AMLOIPINE BESYLATE [Concomitant]
  5. DIOVAN HCT [Concomitant]
     Active Substance: HYDROCHLOROTHIAZIDE\VALSARTAN
  6. ROSUVASTATIN [Concomitant]
     Active Substance: ROSUVASTATIN
  7. OZMEPRAZOL [Concomitant]
  8. CYMBALTA [Concomitant]
     Active Substance: DULOXETINE HYDROCHLORIDE
  9. TYLENOL [Concomitant]
     Active Substance: ACETAMINOPHEN
  10. 50+ WOMANS VITAMIN [Concomitant]

REACTIONS (1)
  - Product container seal issue [None]

NARRATIVE: CASE EVENT DATE: 20241026
